FAERS Safety Report 10565719 (Version 2)
Quarter: 2014Q4

REPORT INFORMATION
  Report Type: Spontaneous
  Country: US (occurrence: US)
  Receive Date: 20141105
  Receipt Date: 20141105
  Transmission Date: 20150529
  Serious: Yes (Death, Other)
  Sender: FDA-Public Use
  Company Number: US-GLAXOSMITHKLINE-A1090274A

PATIENT

DRUGS (18)
  1. VOTRIENT [Suspect]
     Active Substance: PAZOPANIB HYDROCHLORIDE
     Indication: RENAL CANCER
     Dosage: 200 MG TABLETS
     Route: 048
     Dates: start: 20140614, end: 20140907
  2. MEGACE [Concomitant]
     Active Substance: MEGESTROL ACETATE
  3. AMLODIPINE [Concomitant]
     Active Substance: AMLODIPINE BESYLATE
  4. HYDROCHLOROTHIAZIDE. [Concomitant]
     Active Substance: HYDROCHLOROTHIAZIDE
  5. LACTULOSE. [Concomitant]
     Active Substance: LACTULOSE
  6. BENEFIBER [Concomitant]
     Active Substance: STARCH, WHEAT
  7. UNSPECIFIED MEDICATION [Concomitant]
     Active Substance: UNSPECIFIED INGREDIENT
  8. OXYCODONE [Concomitant]
     Active Substance: OXYCODONE
  9. ESTER-C [Concomitant]
     Active Substance: CALCIUM\VITAMINS
  10. ATENOLOL. [Concomitant]
     Active Substance: ATENOLOL
  11. DOCUSATE [Concomitant]
     Active Substance: DOCUSATE
  12. XANAX [Concomitant]
     Active Substance: ALPRAZOLAM
  13. MIRTAZAPINE. [Concomitant]
     Active Substance: MIRTAZAPINE
  14. LISINOPRIL. [Concomitant]
     Active Substance: LISINOPRIL
  15. VITAMIN B12 [Concomitant]
     Active Substance: CYANOCOBALAMIN
  16. OXYCONTIN [Concomitant]
     Active Substance: OXYCODONE HYDROCHLORIDE
  17. MULTIVITAMIN [Concomitant]
     Active Substance: VITAMINS
  18. VITAMIN E [Concomitant]
     Active Substance: .ALPHA.-TOCOPHEROL

REACTIONS (2)
  - Neoplasm malignant [Fatal]
  - Malaise [Unknown]

NARRATIVE: CASE EVENT DATE: 20140920
